FAERS Safety Report 15992522 (Version 1)
Quarter: 2019Q1

REPORT INFORMATION
  Report Type: Spontaneous
  Country: US (occurrence: US)
  Receive Date: 20190221
  Receipt Date: 20190221
  Transmission Date: 20190418
  Serious: Yes (Death)
  Sender: FDA-Public Use
  Company Number: US-TAKEDA-2019TUS006424

PATIENT
  Age: 61 Year
  Sex: Male
  Weight: 100 kg

DRUGS (4)
  1. VELCADE [Suspect]
     Active Substance: BORTEZOMIB
     Indication: AMYLOIDOSIS
     Dosage: 2.8 MILLIGRAM, 1/WEEK
     Route: 058
     Dates: start: 20190124, end: 20190131
  2. DARATUMUMAB [Suspect]
     Active Substance: DARATUMUMAB
     Indication: AMYLOIDOSIS
     Dosage: 1800 MILLIGRAM, 1/WEEK
     Route: 058
     Dates: start: 20190124, end: 20190131
  3. DEXAMETHASONE. [Suspect]
     Active Substance: DEXAMETHASONE
     Indication: AMYLOIDOSIS
     Dosage: 20 MILLIGRAM, 1/WEEK
     Route: 048
     Dates: start: 20190124, end: 20190131
  4. CYCLOPHOSPHAMIDE. [Suspect]
     Active Substance: CYCLOPHOSPHAMIDE
     Indication: AMYLOIDOSIS
     Dosage: 500 MILLIGRAM, 1/WEEK
     Route: 042
     Dates: start: 20190124, end: 20190131

REACTIONS (1)
  - Death [Fatal]

NARRATIVE: CASE EVENT DATE: 20190204
